FAERS Safety Report 21136640 (Version 1)
Quarter: 2022Q3

REPORT INFORMATION
  Report Type: Spontaneous
  Country: US (occurrence: None)
  Receive Date: 20220726
  Receipt Date: 20220726
  Transmission Date: 20221027
  Serious: No
  Sender: FDA-Public Use
  Company Number: None

PATIENT
  Sex: Female

DRUGS (1)
  1. HUMIRA [Suspect]
     Active Substance: ADALIMUMAB
     Indication: Hidradenitis
     Dosage: 40MG EVERY7 DAYS UNDER THE SKIN?
     Route: 058
     Dates: start: 20220308

REACTIONS (4)
  - Furuncle [None]
  - Inflammation [None]
  - Pain [None]
  - Drug ineffective [None]
